FAERS Safety Report 6714313-1 (Version None)
Quarter: 2010Q2

REPORT INFORMATION
  Report Type: 
  Country: None (occurrence: None)
  Receive Date: 20100506
  Receipt Date: 20100428
  Transmission Date: 20101027
  Serious: Yes (Hospitalization, Other)
  Sender: FDA-Public Use
  Company Number: FR-ABBOTT-10P-056-0641365-00

PATIENT
  Sex: Male
  Weight: 70 kg

DRUGS (12)
  1. KALETRA [Suspect]
     Indication: HIV INFECTION
     Route: 048
  2. SYMBICORT [Interacting]
     Indication: CHRONIC OBSTRUCTIVE PULMONARY DISEASE
     Dosage: 400/12 MCG, 4 DOSAGE FORMS DAILY
     Route: 045
     Dates: end: 20100212
  3. NASACORT [Interacting]
     Indication: CHRONIC OBSTRUCTIVE PULMONARY DISEASE
     Dosage: 2 DOSAGE FORMS DAILY
     Route: 045
     Dates: end: 20100212
  4. KIVEXA [Concomitant]
     Indication: HIV INFECTION
  5. INSULINE [Concomitant]
     Indication: DIABETES MELLITUS
     Dates: start: 20070101
  6. COTAREG [Concomitant]
     Indication: DRUG USE FOR UNKNOWN INDICATION
     Dates: end: 20100221
  7. PLAVIX [Concomitant]
     Indication: DRUG USE FOR UNKNOWN INDICATION
  8. LYRICA [Concomitant]
     Indication: DRUG USE FOR UNKNOWN INDICATION
  9. NEXIUM [Concomitant]
     Indication: DRUG USE FOR UNKNOWN INDICATION
  10. BRICANYL [Concomitant]
     Indication: DRUG USE FOR UNKNOWN INDICATION
  11. LASIX [Concomitant]
     Indication: DRUG USE FOR UNKNOWN INDICATION
     Dates: end: 20100218
  12. AUGMENTIN '125' [Concomitant]
     Indication: DRUG USE FOR UNKNOWN INDICATION
     Dates: start: 20100201

REACTIONS (13)
  - ABNORMAL BEHAVIOUR [None]
  - ADRENAL INSUFFICIENCY [None]
  - BLOOD CREATININE INCREASED [None]
  - BLOOD PRESSURE DECREASED [None]
  - BRONCHITIS [None]
  - CUSHING'S SYNDROME [None]
  - DEHYDRATION [None]
  - DRUG INTERACTION [None]
  - HYPERKALAEMIA [None]
  - HYPOTENSION [None]
  - INTERSTITIAL LUNG DISEASE [None]
  - NEUROPATHY PERIPHERAL [None]
  - PULSE ABSENT [None]
